FAERS Safety Report 5689365-0 (Version None)
Quarter: 2008Q1

REPORT INFORMATION
  Report Type: 
  Country: None (occurrence: None)
  Receive Date: 20080328
  Receipt Date: 20080312
  Transmission Date: 20080703
  Serious: Yes (Hospitalization)
  Sender: FDA-Public Use
  Company Number: 2008S1000049

PATIENT
  Age: 58 Year
  Sex: Female
  Weight: 151 kg

DRUGS (19)
  1. CUBICIN [Suspect]
     Indication: CELLULITIS
     Dosage: 3.3 MG/KG;QD;IV
     Route: 042
     Dates: start: 20071201, end: 20080120
  2. FERROUS GLUCONATE [Concomitant]
  3. ZOSYN [Concomitant]
  4. LACTULOSE [Concomitant]
  5. FOLIC ACID [Concomitant]
  6. ASCORBIC ACID [Concomitant]
  7. ZINC [Concomitant]
  8. DURAGESIC-100 [Concomitant]
  9. CIPROFLOXACIN [Concomitant]
  10. MEGACE [Concomitant]
  11. FLUCONAZOLE [Concomitant]
  12. WELLBUTRIN [Concomitant]
  13. DILTIAZEM [Concomitant]
  14. DALTEPARIN SODIUM [Concomitant]
  15. FUROSEMIDE [Concomitant]
  16. LYRICA [Concomitant]
  17. COREG [Concomitant]
  18. LORTAB [Concomitant]
  19. PEPCID [Concomitant]

REACTIONS (12)
  - ALANINE AMINOTRANSFERASE INCREASED [None]
  - AMMONIA INCREASED [None]
  - ASPARTATE AMINOTRANSFERASE INCREASED [None]
  - HAEMATOCRIT DECREASED [None]
  - HAEMOGLOBIN DECREASED [None]
  - INSULIN-REQUIRING TYPE 2 DIABETES MELLITUS [None]
  - KLEBSIELLA INFECTION [None]
  - RENAL FAILURE ACUTE [None]
  - RESPIRATORY ACIDOSIS [None]
  - RESPIRATORY FAILURE [None]
  - RHABDOMYOLYSIS [None]
  - WOUND INFECTION [None]
